FAERS Safety Report 7427448-5 (Version None)
Quarter: 2011Q2

REPORT INFORMATION
  Report Type: 
  Country: None (occurrence: None)
  Receive Date: 20110420
  Receipt Date: 20110325
  Transmission Date: 20111010
  Serious: No
  Sender: FDA-Public Use
  Company Number: US-B.I. PHARMACEUTICALS,INC./RIDGEFIELD-2011-BP-09298BP

PATIENT
  Sex: Female

DRUGS (5)
  1. ZOCOR [Concomitant]
  2. PRADAXA [Suspect]
     Indication: TRANSIENT ISCHAEMIC ATTACK
  3. LOVAZA [Concomitant]
  4. CENTRUM SILVER [Concomitant]
  5. PRADAXA [Suspect]
     Indication: ATRIAL FIBRILLATION
     Dates: end: 20110324

REACTIONS (1)
  - OEDEMA PERIPHERAL [None]
